FAERS Safety Report 13179950 (Version 1)
Quarter: 2017Q1

REPORT INFORMATION
  Report Type: Spontaneous
  Country: AT (occurrence: AT)
  Receive Date: 20170202
  Receipt Date: 20170202
  Transmission Date: 20170428
  Serious: Yes (Hospitalization)
  Sender: FDA-Public Use
  Company Number: AT-ELI_LILLY_AND_COMPANY-AT201701010090

PATIENT
  Age: 32 Year
  Sex: Female

DRUGS (3)
  1. ZYPREXA [Suspect]
     Active Substance: OLANZAPINE
     Dosage: 10 MG, UNKNOWN
     Route: 065
     Dates: start: 20170108, end: 20170108
  2. ZYPREXA [Suspect]
     Active Substance: OLANZAPINE
     Dosage: 30 MG, UNKNOWN
     Route: 065
  3. ZYPREXA [Suspect]
     Active Substance: OLANZAPINE
     Indication: SCHIZOPHRENIA
     Dosage: 2.5 MG, UNKNOWN
     Route: 065

REACTIONS (5)
  - Kidney congestion [Unknown]
  - Fear [Unknown]
  - Urinary retention [Unknown]
  - Intentional product misuse [Unknown]
  - Prescribed overdose [Unknown]

NARRATIVE: CASE EVENT DATE: 201701
